FAERS Safety Report 11867345 (Version 2)
Quarter: 2016Q1

REPORT INFORMATION
  Report Type: Spontaneous
  Country: US (occurrence: US)
  Receive Date: 20151224
  Receipt Date: 20160105
  Transmission Date: 20160526
  Serious: Yes (Hospitalization)
  Sender: FDA-Public Use
  Company Number: PHEH2015US026733

PATIENT
  Sex: Male

DRUGS (1)
  1. VOTRIENT [Suspect]
     Active Substance: PAZOPANIB HYDROCHLORIDE
     Indication: OSTEOSARCOMA
     Dosage: 800 MG, QD
     Route: 048
     Dates: start: 20151204

REACTIONS (5)
  - Tremor [Unknown]
  - Seizure [Unknown]
  - Vision blurred [Unknown]
  - Gait disturbance [Unknown]
  - Nervous system disorder [Unknown]
